FAERS Safety Report 17465771 (Version 1)
Quarter: 2020Q1

REPORT INFORMATION
  Report Type: Report from Study
  Country: CA (occurrence: CA)
  Receive Date: 20200227
  Receipt Date: 20200227
  Transmission Date: 20200409
  Serious: Yes (Other)
  Sender: FDA-Public Use
  Company Number: CA-BRISTOL-MYERS SQUIBB COMPANY-BMS-2017-071333

PATIENT
  Age: 64 Year
  Sex: Male

DRUGS (4)
  1. CORTISONE [Concomitant]
     Active Substance: CORTISONE
     Indication: PRODUCT USED FOR UNKNOWN INDICATION
     Route: 065
  2. ABATACEPT [Suspect]
     Active Substance: ABATACEPT
     Indication: RHEUMATOID ARTHRITIS
     Dosage: 125 MILLIGRAM, QWK
     Route: 058
     Dates: start: 20170706, end: 20191116
  3. DESOXIMETASONE. [Concomitant]
     Active Substance: DESOXIMETASONE
     Indication: PRODUCT USED FOR UNKNOWN INDICATION
     Dosage: UNK
     Route: 065
  4. METHOTREXATE. [Suspect]
     Active Substance: METHOTREXATE
     Indication: PRODUCT USED FOR UNKNOWN INDICATION
     Dosage: UNK
     Route: 065

REACTIONS (9)
  - Drug ineffective [Recovered/Resolved]
  - Arthralgia [Recovered/Resolved]
  - Fatigue [Recovered/Resolved]
  - Rheumatoid arthritis [Recovered/Resolved]
  - Tremor [Recovered/Resolved]
  - Expired product administered [Recovered/Resolved]
  - Viral infection [Unknown]
  - Contusion [Recovered/Resolved]
  - Joint swelling [Recovered/Resolved]

NARRATIVE: CASE EVENT DATE: 20170803
